FAERS Safety Report 8393570-2 (Version None)
Quarter: 2012Q2

REPORT INFORMATION
  Report Type: 
  Country: None (occurrence: None)
  Receive Date: 20120530
  Receipt Date: 20111101
  Transmission Date: 20120825
  Serious: Yes (Hospitalization)
  Sender: FDA-Public Use
  Company Number: IL-AMGEN-ISRSP2011070084

PATIENT
  Age: 56 Year
  Sex: Female

DRUGS (1)
  1. NEULASTIM [Suspect]
     Indication: PROPHYLAXIS
     Dosage: UNK

REACTIONS (2)
  - PYREXIA [None]
  - ASTHENIA [None]
